FAERS Safety Report 5877102-6 (Version None)
Quarter: 2008Q3

REPORT INFORMATION
  Report Type: 
  Country: None (occurrence: None)
  Receive Date: 20080910
  Receipt Date: 20080908
  Transmission Date: 20090109
  Serious: Yes (Death, Hospitalization, Other)
  Sender: FDA-Public Use
  Company Number: PHEH2007US13115

PATIENT
  Sex: Male
  Weight: 95.238 kg

DRUGS (4)
  1. TEKTURNA [Suspect]
     Indication: HYPERTENSION
     Dosage: 300 MG, QD
     Route: 048
     Dates: start: 20070629, end: 20070926
  2. EXFORGE [Concomitant]
     Indication: HYPERTENSION
     Dosage: 5/320 MG DAILY
     Dates: start: 20070823
  3. LASIX [Concomitant]
     Indication: OEDEMA
     Dosage: 20 UNK, UNK
     Dates: start: 20070813
  4. K-DUR [Concomitant]
     Indication: OEDEMA
     Dosage: 10 UNK, UNK
     Dates: start: 20070813

REACTIONS (14)
  - BLOOD CALCIUM DECREASED [None]
  - BLOOD CREATININE INCREASED [None]
  - BLOOD UREA INCREASED [None]
  - BRADYCARDIA [None]
  - CARDIAC ARREST [None]
  - CARDIOMYOPATHY [None]
  - DYSPNOEA [None]
  - ENDOTRACHEAL INTUBATION [None]
  - HYPOTENSION [None]
  - HYPOXIA [None]
  - LIFE SUPPORT [None]
  - OEDEMA PERIPHERAL [None]
  - PULMONARY EMBOLISM [None]
  - SYNCOPE [None]
